FAERS Safety Report 10652900 (Version 1)
Quarter: 2014Q4

REPORT INFORMATION
  Report Type: Other
  Country: IT (occurrence: IT)
  Receive Date: 20141215
  Receipt Date: 20141215
  Transmission Date: 20150529
  Serious: Yes (Hospitalization)
  Sender: FDA-Public Use
  Company Number: IT-MYLANLABS-2014M1013414

PATIENT

DRUGS (5)
  1. TOLEP [Suspect]
     Active Substance: OXCARBAZEPINE
     Indication: INTENTIONAL SELF-INJURY
     Dosage: UNK
     Dates: start: 20140730, end: 20140730
  2. PLAUNAC [Suspect]
     Active Substance: OLMESARTAN MEDOXOMIL
     Indication: INTENTIONAL SELF-INJURY
     Dates: start: 20140730, end: 20140730
  3. CLONAZEPAM. [Concomitant]
     Active Substance: CLONAZEPAM
     Indication: PRODUCT USED FOR UNKNOWN INDICATION
     Dosage: UNK
  4. OXCARBAMAZEPINE [Concomitant]
     Active Substance: OXCARBAZEPINE
     Indication: PRODUCT USED FOR UNKNOWN INDICATION
     Dosage: UNK
  5. OLANZAPINE. [Suspect]
     Active Substance: OLANZAPINE
     Indication: INTENTIONAL SELF-INJURY
     Dosage: UNK
     Dates: start: 20140730, end: 20140730

REACTIONS (3)
  - Overdose [Unknown]
  - Miosis [Unknown]
  - Coma [Unknown]

NARRATIVE: CASE EVENT DATE: 20140730
